FAERS Safety Report 23394197 (Version 2)
Quarter: 2024Q1

REPORT INFORMATION
  Report Type: Spontaneous
  Country: US (occurrence: US)
  Receive Date: 20240111
  Receipt Date: 20240122
  Transmission Date: 20240410
  Serious: Yes (Hospitalization)
  Sender: FDA-Public Use
  Company Number: US-KARYOPHARM-2024KPT000029

PATIENT

DRUGS (15)
  1. XPOVIO [Suspect]
     Active Substance: SELINEXOR
     Indication: Plasma cell myeloma
     Dosage: 60 MG, WEEKLY (D1,8,15+22)
     Route: 048
     Dates: start: 202312, end: 20240108
  2. FLUTICASONE FUROATE\SALMETEROL XINAFOATE [Concomitant]
     Active Substance: FLUTICASONE FUROATE\SALMETEROL XINAFOATE
  3. HYDROCORTISONE [Concomitant]
     Active Substance: HYDROCORTISONE
  4. LOPERAMIDE HYDROCHLORIDE [Concomitant]
     Active Substance: LOPERAMIDE HYDROCHLORIDE
  5. NYSTATIN [Concomitant]
     Active Substance: NYSTATIN
  6. PROVENTIL HFA [SALBUTAMOL] [Concomitant]
  7. VALACYCLOVIR HYDROCHLORIDE [Concomitant]
     Active Substance: VALACYCLOVIR HYDROCHLORIDE
  8. PANTOPRAZOLE SODIUM [Concomitant]
     Active Substance: PANTOPRAZOLE SODIUM
  9. ZOFRAN [Concomitant]
     Active Substance: ONDANSETRON HYDROCHLORIDE
  10. AMLODIPINE BESYLATE [Concomitant]
     Active Substance: AMLODIPINE BESYLATE
  11. ATOVAQUONE [Concomitant]
     Active Substance: ATOVAQUONE
  12. DEXAMETHASONE [Concomitant]
     Active Substance: DEXAMETHASONE
  13. ELIQUIS [Concomitant]
     Active Substance: APIXABAN
  14. MOMETASONE FUROATE [Concomitant]
     Active Substance: MOMETASONE FUROATE
  15. POTASSIUM CHLORIDE [Concomitant]
     Active Substance: POTASSIUM CHLORIDE

REACTIONS (2)
  - Clavicle fracture [Unknown]
  - Plasma cell myeloma [Unknown]

NARRATIVE: CASE EVENT DATE: 20240108
